FAERS Safety Report 25158090 (Version 1)
Quarter: 2025Q2

REPORT INFORMATION
  Report Type: Spontaneous
  Country: US (occurrence: US)
  Receive Date: 20250404
  Receipt Date: 20250404
  Transmission Date: 20250716
  Serious: No
  Sender: ELI LILLY AND CO
  Company Number: US-ELI_LILLY_AND_COMPANY-US202503023146

PATIENT
  Age: 74 Year
  Sex: Female

DRUGS (2)
  1. BASAGLAR [Suspect]
     Active Substance: INSULIN GLARGINE
     Indication: Product used for unknown indication
     Dosage: 33 U, DAILY (AT NIGHT)
     Route: 065
     Dates: start: 2021
  2. PREDNISONE [Concomitant]
     Active Substance: PREDNISONE
     Indication: Product used for unknown indication

REACTIONS (3)
  - Cataract [Unknown]
  - Colitis ulcerative [Unknown]
  - Eye irritation [Unknown]

NARRATIVE: CASE EVENT DATE: 20240901
